FAERS Safety Report 11937624 (Version 3)
Quarter: 2018Q4

REPORT INFORMATION
  Report Type: Spontaneous
  Country: US (occurrence: US)
  Receive Date: 20160122
  Receipt Date: 20181206
  Transmission Date: 20190204
  Serious: No
  Sender: FDA-Public Use
  Company Number: US-ASTRAZENECA-2016SE03016

PATIENT
  Sex: Female
  Weight: 187 kg

DRUGS (11)
  1. SIMVASTATIN. [Concomitant]
     Active Substance: SIMVASTATIN
     Indication: BLOOD CHOLESTEROL ABNORMAL
     Route: 048
  2. ACEON [Concomitant]
     Active Substance: PERINDOPRIL ERBUMINE
     Indication: BLOOD PRESSURE ABNORMAL
     Route: 048
     Dates: start: 201805
  3. GLIMEPIRIDE. [Concomitant]
     Active Substance: GLIMEPIRIDE
     Indication: TYPE 2 DIABETES MELLITUS
     Route: 048
  4. DAYPRO [Concomitant]
     Active Substance: OXAPROZIN
     Indication: ANTIINFLAMMATORY THERAPY
     Route: 048
  5. POTASSIUM [Concomitant]
     Active Substance: POTASSIUM
     Indication: OEDEMA
     Dosage: 10.0MG UNKNOWN
     Route: 048
  6. ONGLYZA [Suspect]
     Active Substance: SAXAGLIPTIN HYDROCHLORIDE
     Indication: TYPE 2 DIABETES MELLITUS
     Route: 048
     Dates: start: 201701
  7. BYETTA [Suspect]
     Active Substance: EXENATIDE
     Indication: TYPE 2 DIABETES MELLITUS
     Route: 058
  8. LASIX [Concomitant]
     Active Substance: FUROSEMIDE
     Indication: OEDEMA
     Dosage: 20.0MG UNKNOWN
     Route: 048
  9. BYDUREON [Suspect]
     Active Substance: EXENATIDE
     Indication: TYPE 2 DIABETES MELLITUS
     Route: 058
  10. PREDNISONE. [Concomitant]
     Active Substance: PREDNISONE
     Indication: ARTHRITIS
  11. ZETIA [Concomitant]
     Active Substance: EZETIMIBE
     Indication: BLOOD CHOLESTEROL ABNORMAL
     Route: 048
     Dates: start: 201805

REACTIONS (10)
  - Product compounding quality issue [Unknown]
  - Blood glucose fluctuation [Unknown]
  - Device leakage [Unknown]
  - Intentional product misuse [Recovering/Resolving]
  - Injection site pain [Unknown]
  - Malaise [Not Recovered/Not Resolved]
  - Product packaging quantity issue [Unknown]
  - Wrong technique in device usage process [Unknown]
  - Grip strength decreased [Unknown]
  - Pollakiuria [Unknown]
